FAERS Safety Report 8785440 (Version 1)
Quarter: 2012Q4

REPORT INFORMATION
  Report Type: 
  Country: FR (occurrence: FR)
  Receive Date: 20120914
  Receipt Date: 20120914
  Transmission Date: 20130627
  Serious: Yes (Hospitalization)
  Sender: FDA-Public Use
  Company Number: FR-ABBOTT-12P-056-0977033-00

PATIENT
  Age: 36 None
  Sex: Female

DRUGS (2)
  1. KALETRA [Suspect]
     Indication: HIV INFECTION
     Route: 048
     Dates: start: 2009, end: 201109
  2. COMBIVIR [Suspect]
     Indication: HIV INFECTION
     Route: 048
     Dates: start: 2009, end: 201109

REACTIONS (10)
  - Self-induced vomiting [Unknown]
  - Decreased appetite [Unknown]
  - Hepatocellular injury [Recovered/Resolved]
  - Mood altered [Unknown]
  - Malaise [Unknown]
  - Confusional state [Unknown]
  - Tachycardia [Unknown]
  - Hypotension [Unknown]
  - Weight decreased [Unknown]
  - Asthenia [Unknown]
